FAERS Safety Report 6540420-2 (Version None)
Quarter: 2010Q1

REPORT INFORMATION
  Report Type: 
  Country: None (occurrence: None)
  Receive Date: 20100115
  Receipt Date: 20100111
  Transmission Date: 20100710
  Serious: Yes (Death, Other)
  Sender: FDA-Public Use
  Company Number: FR-BRISTOL-MYERS SQUIBB COMPANY-14929616

PATIENT
  Age: 50 Year
  Sex: Male

DRUGS (13)
  1. APROVEL TABS 150 MG [Suspect]
     Route: 048
     Dates: end: 20090914
  2. FLECAINIDE ACETATE [Suspect]
     Indication: VENTRICULAR ARRHYTHMIA
     Dosage: 100 MG TABS
     Route: 048
  3. PROPRANOLOL [Suspect]
  4. EUPRESSYL [Suspect]
  5. TAHOR [Suspect]
     Dates: end: 20090914
  6. ALLOPURINOL [Suspect]
     Dates: end: 20090914
  7. MIMPARA [Suspect]
     Dates: end: 20090914
  8. PANTOPRAZOLE [Suspect]
     Dates: end: 20090914
  9. DIPRIVAN [Suspect]
     Indication: ANAESTHESIA
     Route: 042
  10. SUFENTANIL CITRATE [Suspect]
     Indication: ANAESTHESIA
     Route: 042
  11. TRACRIUM [Suspect]
     Indication: ANAESTHESIA
     Route: 042
  12. DESFLURANE [Suspect]
     Indication: SURGERY
     Route: 042
     Dates: start: 20090915
  13. CEFAZOLIN [Suspect]
     Indication: PROPHYLAXIS
     Route: 042
     Dates: start: 20090915

REACTIONS (2)
  - HYPOTENSION [None]
  - VENTRICULAR ARRHYTHMIA [None]
